FAERS Safety Report 12503124 (Version 1)
Quarter: 2016Q2

REPORT INFORMATION
  Report Type: Other
  Country: DE (occurrence: DE)
  Receive Date: 20160628
  Receipt Date: 20160628
  Transmission Date: 20160815
  Serious: Yes (Death)
  Sender: FDA-Public Use
  Company Number: DE-LUPIN PHARMACEUTICALS INC.-E2B_00005335

PATIENT
  Age: 75 Year
  Sex: Female

DRUGS (4)
  1. CIPROFLOXACIN. [Suspect]
     Active Substance: CIPROFLOXACIN
     Indication: URINARY TRACT INFECTION
     Route: 048
     Dates: start: 20160219, end: 20160222
  2. TRANSTEC [Concomitant]
     Active Substance: BUPRENORPHINE
     Indication: BONE DISORDER
     Dosage: 35 UG/H
     Route: 062
     Dates: start: 201410
  3. OXAZEPAM. [Suspect]
     Active Substance: OXAZEPAM
     Indication: RESTLESSNESS
     Dosage: 1/2 - 1 TABLET AT NIGHT.
     Route: 048
     Dates: start: 20160211
  4. PAROXETINE. [Suspect]
     Active Substance: PAROXETINE
     Indication: DEPRESSION
     Route: 048
     Dates: start: 20160211

REACTIONS (1)
  - Completed suicide [Fatal]

NARRATIVE: CASE EVENT DATE: 20160224
